FAERS Safety Report 10055163 (Version 1)
Quarter: 2014Q2

REPORT INFORMATION
  Report Type: Report from Study
  Country: BR (occurrence: BR)
  Receive Date: 20140402
  Receipt Date: 20140402
  Transmission Date: 20141212
  Serious: Yes (Other)
  Sender: FDA-Public Use
  Company Number: PHHY2014BR039726

PATIENT
  Age: 78 Year
  Sex: Female
  Weight: 78 kg

DRUGS (9)
  1. EXELON PATCH [Suspect]
     Indication: DEMENTIA ALZHEIMER^S TYPE
     Dosage: 13.3 MG DAILY (27 MG/15 CM2)
     Route: 062
  2. EXELON [Suspect]
     Indication: DEMENTIA ALZHEIMER^S TYPE
     Dosage: 2 DF, DAILY (4.5 MG)
  3. EXELON [Suspect]
     Dosage: 2 DF, DAILY (6MG)
  4. EXELON [Suspect]
     Dosage: 2 DF, DAILY (6MG)
  5. METICORTEN [Suspect]
     Dosage: UNK UKN, UNK
  6. METICORTEN [Suspect]
     Dosage: 60 MG, UNK
     Dates: start: 201312
  7. METICORTEN [Suspect]
     Dosage: 50 MG, UNK
     Dates: start: 201401
  8. SELOZOK [Concomitant]
     Indication: ARRHYTHMIA
     Dosage: 2 DF, DAILY
  9. HIGROTON [Concomitant]
     Indication: BLOOD PRESSURE
     Dosage: 1 DF, DAILY

REACTIONS (1)
  - Autoimmune aplastic anaemia [Unknown]
